FAERS Safety Report 11653362 (Version 4)
Quarter: 2016Q1

REPORT INFORMATION
  Report Type: Report from Study
  Country: CO (occurrence: CO)
  Receive Date: 20151022
  Receipt Date: 20160323
  Transmission Date: 20160525
  Serious: Yes (Life-Threatening)
  Sender: FDA-Public Use
  Company Number: PHHY2015CO094376

PATIENT
  Age: 58 Year
  Sex: Female
  Weight: 54 kg

DRUGS (1)
  1. SANDOSTATIN LAR DEPOT [Suspect]
     Active Substance: OCTREOTIDE ACETATE
     Indication: ACROMEGALY
     Dosage: 30 MG, QMO
     Route: 030
     Dates: start: 20150915

REACTIONS (15)
  - Pain [Unknown]
  - Osteitis [Unknown]
  - Drug intolerance [Unknown]
  - Pyrexia [Unknown]
  - Weight decreased [Unknown]
  - Feeling abnormal [Unknown]
  - Fall [Unknown]
  - Nausea [Unknown]
  - Vomiting [Unknown]
  - Muscle spasms [Unknown]
  - Musculoskeletal pain [Unknown]
  - Influenza [Unknown]
  - Cough [Unknown]
  - Drug ineffective [Unknown]
  - Bone disorder [Unknown]

NARRATIVE: CASE EVENT DATE: 20150915
